FAERS Safety Report 9418788 (Version 1)
Quarter: 2013Q3

REPORT INFORMATION
  Report Type: Spontaneous
  Country: US (occurrence: US)
  Receive Date: 20130725
  Receipt Date: 20130725
  Transmission Date: 20140515
  Serious: No
  Sender: FDA-Public Use
  Company Number: US-PFIZER INC-2013217125

PATIENT
  Age: 45 Year
  Sex: Female

DRUGS (4)
  1. NEURONTIN [Suspect]
  2. DOXYCYCLINE HYCLATE [Suspect]
  3. NAPROXEN SODIUM [Suspect]
  4. LORTAB [Suspect]

REACTIONS (1)
  - Drug hypersensitivity [Unknown]
